FAERS Safety Report 23192260 (Version 1)
Quarter: 2023Q4

REPORT INFORMATION
  Report Type: Spontaneous
  Country: CH (occurrence: CH)
  Receive Date: 20231116
  Receipt Date: 20231116
  Transmission Date: 20240110
  Serious: Yes (Death)
  Sender: FDA-Public Use
  Company Number: None

PATIENT
  Age: 26 Year
  Sex: Male
  Weight: 61 kg

DRUGS (26)
  1. CYCLOSPORINE [Suspect]
     Active Substance: CYCLOSPORINE
     Indication: Product used for unknown indication
     Dosage: IN TOTAL (OVER 12 H (12:00 P.M.?6:30 P.M)
     Route: 041
     Dates: start: 20231020, end: 20231020
  2. GRAFALON [Suspect]
     Active Substance: LAPINE T-LYMPHOCYTE IMMUNE GLOBULIN
     Indication: Product used for unknown indication
     Dosage: IN TOTAL OVER 9 H (09 A.M.?6:00 P.M.) WITH A CONTINUOUS INFUSION RATE OF 28 ML/H
     Route: 041
     Dates: start: 20231020, end: 20231020
  3. FLUDARABINE PHOSPHATE [Concomitant]
     Active Substance: FLUDARABINE PHOSPHATE
     Indication: Product used for unknown indication
     Dosage: 50 MG, QD
     Route: 042
     Dates: start: 20231017, end: 20231020
  4. BACTRIM [Concomitant]
     Active Substance: SULFAMETHOXAZOLE\TRIMETHOPRIM
     Indication: Product used for unknown indication
     Dosage: 960 MG (1 TABLET: 3X/WEEK: MON/WED/FRI)
     Route: 048
     Dates: start: 20230616, end: 20231020
  5. CALCIUM\CHOLECALCIFEROL [Concomitant]
     Active Substance: CALCIUM\CHOLECALCIFEROL
     Indication: Osteoporosis prophylaxis
     Dosage: 500 MG/800 I.U (0-1-0-0)
     Route: 048
  6. ESOMEPRAZOLE [Concomitant]
     Active Substance: ESOMEPRAZOLE
     Indication: Product used for unknown indication
     Dosage: 40 MG, QD (1-0-0-0)
     Route: 048
     Dates: start: 20230910
  7. EUTHYROX [Concomitant]
     Active Substance: LEVOTHYROXINE SODIUM
     Indication: Central hypothyroidism
     Dosage: 125 UG, QD (1-0-0-0)
     Route: 048
  8. KEPPRA [Concomitant]
     Active Substance: LEVETIRACETAM
     Indication: Epilepsy
     Dosage: 500 MG, Q12H
     Route: 048
     Dates: start: 20150812
  9. PREDNISONE [Concomitant]
     Active Substance: PREDNISONE
     Indication: Product used for unknown indication
     Dosage: 50 MG, QD (1-0-0-0)
     Route: 065
     Dates: start: 20230921, end: 20231019
  10. VALERIAN [Concomitant]
     Active Substance: VALERIAN
     Indication: Product used for unknown indication
     Dosage: 20 DROPS (0-0-0-20 DROPS)
     Route: 048
  11. POTASSIUM CHLORIDE [Concomitant]
     Active Substance: POTASSIUM CHLORIDE
     Indication: Hypokalaemia
     Dosage: AS NECESSARY
     Route: 048
     Dates: start: 20230710
  12. POTASSIUM CHLORIDE [Concomitant]
     Active Substance: POTASSIUM CHLORIDE
     Dosage: 2 MMOL/ML ; IN TOTAL
     Route: 042
     Dates: start: 20231020, end: 20231020
  13. AMPHO-MORONAL [Concomitant]
     Active Substance: AMPHOTERICIN B
     Indication: Product used for unknown indication
     Dosage: 2 ML, Q6H
     Route: 048
     Dates: start: 20231016
  14. VALTREX [Concomitant]
     Active Substance: VALACYCLOVIR HYDROCHLORIDE
     Indication: Product used for unknown indication
     Dosage: 500 MG, Q12H
     Route: 048
     Dates: start: 20231016
  15. DE-URSIL [Concomitant]
     Indication: Product used for unknown indication
     Dosage: 300 MG, Q8H (1-1-1-0)
     Route: 048
     Dates: start: 20231016
  16. DAFALGAN [Concomitant]
     Active Substance: ACETAMINOPHEN
     Indication: Pain
     Dosage: IN TOTAL
     Route: 048
     Dates: start: 20231016, end: 20231016
  17. FRAGMIN [Concomitant]
     Active Substance: DALTEPARIN SODIUM
     Indication: Thrombosis prophylaxis
     Dosage: 5000 I.U./0.2 ML ; IN TOTAL
     Route: 058
     Dates: start: 20231016, end: 20231016
  18. CANCIDAS [Concomitant]
     Active Substance: CASPOFUNGIN ACETATE
     Indication: Product used for unknown indication
     Dosage: 70 MG
     Route: 042
     Dates: start: 20231016, end: 20231016
  19. CANCIDAS [Concomitant]
     Active Substance: CASPOFUNGIN ACETATE
     Dosage: 50 MG
     Route: 042
     Dates: start: 20231017
  20. SODIUM CHLORIDE [Concomitant]
     Active Substance: SODIUM CHLORIDE
     Indication: Product used for unknown indication
     Dosage: 1000 ML, QD
     Route: 042
     Dates: start: 20231016
  21. NOVALGIN [Concomitant]
     Indication: Product used for unknown indication
     Dosage: IN TOTAL
     Route: 042
     Dates: start: 20231020, end: 20231020
  22. ONDANSETRON [Concomitant]
     Active Substance: ONDANSETRON
     Indication: Product used for unknown indication
     Dosage: 8 MG, QD
     Route: 042
     Dates: start: 20231017
  23. SOLU-MEDROL [Concomitant]
     Active Substance: METHYLPREDNISOLONE SODIUM SUCCINATE
     Indication: Product used for unknown indication
     Dosage: 500 MG IV 1 G AT 8:50 AM
     Route: 042
     Dates: start: 20231020, end: 20231020
  24. CLEMASTINE FUMARATE [Concomitant]
     Active Substance: CLEMASTINE FUMARATE
     Indication: Product used for unknown indication
     Dosage: 2 MG
     Route: 042
     Dates: start: 20231020, end: 20231020
  25. LISINOPRIL [Concomitant]
     Active Substance: LISINOPRIL
     Indication: Hypertension
     Dosage: IN TOTAL (AT 7:00 AM)
     Route: 048
     Dates: start: 20231020, end: 20231020
  26. PHENYTOIN [Concomitant]
     Active Substance: PHENYTOIN
     Indication: Product used for unknown indication
     Dosage: 200 MG AT 8:00 AM AND 200 MG AT 2:00 PM
     Route: 048
     Dates: start: 20231020, end: 20231020

REACTIONS (1)
  - Anaphylactic reaction [Fatal]

NARRATIVE: CASE EVENT DATE: 20231021
